FAERS Safety Report 7481122-8 (Version None)
Quarter: 2011Q2

REPORT INFORMATION
  Report Type: 
  Country: None (occurrence: None)
  Receive Date: 20110516
  Receipt Date: 20110502
  Transmission Date: 20111010
  Serious: No
  Sender: FDA-Public Use
  Company Number: US-ELI_LILLY_AND_COMPANY-US201104000096

PATIENT
  Sex: Female

DRUGS (11)
  1. COREG CR [Concomitant]
     Dosage: UNK, QD
  2. FORTEO [Suspect]
     Indication: OSTEOPOROSIS
     Dosage: UNK
     Dates: start: 20100825
  3. DILANTIN [Concomitant]
     Dosage: UNK, BID
  4. DIAZEPAM [Concomitant]
     Indication: ANXIETY
     Dosage: 5 MG, OTHER
  5. VYTORIN [Concomitant]
     Dosage: UNK, QD
  6. EXFORGE [Concomitant]
     Dosage: UNK, QD
  7. MICRO-K [Concomitant]
     Dosage: UNK, QD
  8. LASIX [Concomitant]
     Dosage: UNK, QD
  9. COMBIVENT [Concomitant]
     Dosage: UNK, EVERY 8 HRS
  10. PHENOBARBITAL TAB [Concomitant]
     Dosage: UNK, BID
  11. CALTRATE + VITAMIN D [Concomitant]
     Dosage: UNK, BID

REACTIONS (4)
  - ANAEMIA [None]
  - FULL BLOOD COUNT DECREASED [None]
  - GASTRITIS [None]
  - HIATUS HERNIA [None]
